FAERS Safety Report 8070846-X (Version None)
Quarter: 2012Q1

REPORT INFORMATION
  Report Type: 
  Country: None (occurrence: None)
  Receive Date: 20120125
  Receipt Date: 20120113
  Transmission Date: 20120608
  Serious: Yes (Hospitalization)
  Sender: FDA-Public Use
  Company Number: JP-GLAXOSMITHKLINE-B0775704A

PATIENT
  Sex: Female
  Weight: 65 kg

DRUGS (9)
  1. ACETAMINOPHEN [Concomitant]
     Indication: HERPES ZOSTER
     Dosage: 1200MG PER DAY
     Route: 048
     Dates: start: 20120111
  2. PLETAL [Concomitant]
     Route: 048
  3. PRAVASTATIN SODIUM [Concomitant]
     Route: 048
  4. MUCOSTA [Concomitant]
     Indication: HERPES ZOSTER
     Dosage: 300MG PER DAY
     Route: 048
     Dates: start: 20120111
  5. NORVASC [Concomitant]
     Route: 048
  6. VALTREX [Suspect]
     Indication: HERPES ZOSTER
     Dosage: 3000MG PER DAY
     Route: 048
     Dates: start: 20120111, end: 20120112
  7. METHYCOBAL [Concomitant]
     Indication: HERPES ZOSTER
     Dosage: 1500MCG PER DAY
     Route: 048
     Dates: start: 20120111
  8. DILTIAZEM HCL [Concomitant]
     Route: 065
  9. SIGMART [Concomitant]
     Route: 065

REACTIONS (6)
  - DEPRESSED LEVEL OF CONSCIOUSNESS [None]
  - ENCEPHALOPATHY [None]
  - DIARRHOEA [None]
  - CHILLS [None]
  - URINARY INCONTINENCE [None]
  - DIZZINESS [None]
